FAERS Safety Report 25563045 (Version 1)
Quarter: 2025Q3

REPORT INFORMATION
  Report Type: Spontaneous
  Country: EU (occurrence: EU)
  Receive Date: 20250716
  Receipt Date: 20250716
  Transmission Date: 20251021
  Serious: Yes (Other)
  Sender: ABBVIE
  Company Number: None

PATIENT
  Age: 69 Year
  Sex: Male
  Weight: 65 kg

DRUGS (2)
  1. FOSCARBIDOPA\FOSLEVODOPA [Suspect]
     Active Substance: FOSCARBIDOPA\FOSLEVODOPA
     Indication: Parkinson^s disease
     Dosage: INFUSION RATE - BASE: 1.10 ML/H? LOW ALTERNATIVE INFUSION RATE: 1 ML/H?HIGH ALTERNATING INFUSION ...
     Route: 058
     Dates: start: 20250106
  2. FOSCARBIDOPA\FOSLEVODOPA [Suspect]
     Active Substance: FOSCARBIDOPA\FOSLEVODOPA
     Route: 058

REACTIONS (4)
  - Persecutory delusion [Recovering/Resolving]
  - Hallucination [Recovered/Resolved]
  - Implant site nodule [Not Recovered/Not Resolved]
  - Medical device site abscess [Recovered/Resolved]

NARRATIVE: CASE EVENT DATE: 20250128
